FAERS Safety Report 13473889 (Version 1)
Quarter: 2017Q2

REPORT INFORMATION
  Report Type: Report from Study
  Country: TR (occurrence: TR)
  Receive Date: 20170424
  Receipt Date: 20170424
  Transmission Date: 20170830
  Serious: Yes (Other)
  Sender: FDA-Public Use
  Company Number: TR-JNJFOC-20170423260

PATIENT
  Sex: Female
  Weight: 63 kg

DRUGS (2)
  1. TENOVIRAL [Suspect]
     Active Substance: TENOFOVIR DISOPROXIL
     Indication: ANTIVIRAL TREATMENT
     Route: 048
     Dates: start: 20170413
  2. SIMPONI [Suspect]
     Active Substance: GOLIMUMAB
     Indication: ANKYLOSING SPONDYLITIS
     Route: 058
     Dates: start: 20170413

REACTIONS (2)
  - Nausea [Not Recovered/Not Resolved]
  - Attention deficit/hyperactivity disorder [Not Recovered/Not Resolved]

NARRATIVE: CASE EVENT DATE: 20170413
